FAERS Safety Report 18665016 (Version 1)
Quarter: 2020Q4

REPORT INFORMATION
  Report Type: Spontaneous
  Country: DE (occurrence: DE)
  Receive Date: 20201225
  Receipt Date: 20201225
  Transmission Date: 20210114
  Serious: Yes (Hospitalization)
  Sender: FDA-Public Use
  Company Number: DE-TEVA-2020-DE-1860867

PATIENT
  Age: 67 Year
  Sex: Male
  Weight: 114 kg

DRUGS (25)
  1. INSULIN DEGLUDEC [Concomitant]
     Active Substance: INSULIN DEGLUDEC
     Dosage: 40 IU (INTERNATIONAL UNIT) DAILY;  0-0-0-1
     Route: 058
  2. NALOXONE W/OXYCODONE [Concomitant]
     Active Substance: NALOXONE HYDROCHLORIDE\OXYCODONE HYDROCHLORIDE
     Dosage: 2 DOSAGE FORMS DAILY; 2.5|5 MG, 1-0-1-0
  3. MACROGOL [Concomitant]
     Active Substance: POLYETHYLENE GLYCOLS
     Dosage: NEED
  4. ROPINIROL [Concomitant]
     Active Substance: ROPINIROLE
     Dosage: 4 MILLIGRAM DAILY;   0-0-0-1
  5. IPRATROPIUMBROMID [Concomitant]
     Active Substance: IPRATROPIUM BROMIDE
     Dosage: REQUIREMENT
     Route: 055
  6. QUETIAPIN [Concomitant]
     Active Substance: QUETIAPINE
     Dosage: 100 MILLIGRAM DAILY;  1-0-1-0
  7. BERODUAL [Concomitant]
     Active Substance: FENOTEROL HYDROBROMIDE\IPRATROPIUM BROMIDE
     Dosage: NEED
     Route: 055
  8. FUROSEMID [Concomitant]
     Active Substance: FUROSEMIDE
     Dosage: 40 MG, AS NEEDED
  9. FUROSEMID [Concomitant]
     Active Substance: FUROSEMIDE
     Dosage: 40 MG, 1-0.5-0-0
  10. SPIRIVA [Concomitant]
     Active Substance: TIOTROPIUM BROMIDE MONOHYDRATE
     Dosage: 18 MICROGRAM DAILY; 1-0-0-0,
     Route: 055
  11. FOSTER 200MIKROGRAMM/6MIKROGRAMM [Concomitant]
     Dosage: 2 DOSAGE FORMS DAILY; 200 | 6 UG, 1-0-1-0
     Route: 055
  12. PROPIVERIN [Concomitant]
     Active Substance: PROPIVERINE
     Dosage: 30 MILLIGRAM DAILY; 1-0-1-0
  13. SALBUTAMOL [Concomitant]
     Active Substance: ALBUTEROL
     Dosage: NEED
     Route: 055
  14. METAMIZOL [Concomitant]
     Active Substance: METAMIZOLE SODIUM
     Dosage: 500 MG, AS NEEDED,
  15. INSULIN LISPRO [Concomitant]
     Active Substance: INSULIN LISPRO
     Dosage: ACCORDING TO THE SCHEME
     Route: 058
  16. DULAGLUTID [Concomitant]
     Active Substance: DULAGLUTIDE
     Dosage: 1.5 MG / WEEK, 1-0-0-0
     Route: 058
  17. BISOPROLOL [Suspect]
     Active Substance: BISOPROLOL
     Dosage: 10 MILLIGRAM DAILY; 1-0-1-0
  18. METFORMIN [Concomitant]
     Active Substance: METFORMIN HYDROCHLORIDE
     Dosage: 1 DOSAGE FORMS DAILY; 1000 MG, 0.5-0-0.5-0
  19. MAGNESIUM [Concomitant]
     Active Substance: MAGNESIUM
     Dosage: 300 MG, REQUIREMENT,
  20. DIGITOXIN [Concomitant]
     Active Substance: DIGITOXIN
     Dosage: .07 MILLIGRAM DAILY;  1-0-0-0
  21. PANTOPRAZOL [Concomitant]
     Active Substance: PANTOPRAZOLE SODIUM
     Dosage: 40 MILLIGRAM DAILY;  1-0-0-0
  22. TAMSULOSIN [Concomitant]
     Active Substance: TAMSULOSIN
     Dosage: .4 MILLIGRAM DAILY; 0-0-1-0
  23. PREGABALIN. [Concomitant]
     Active Substance: PREGABALIN
     Dosage: 100 MILLIGRAM DAILY;  1-0-1-0
  24. SIMVASTATIN. [Concomitant]
     Active Substance: SIMVASTATIN
     Dosage: 40 MILLIGRAM DAILY;  0-0-1-0
  25. APIXABAN [Concomitant]
     Active Substance: APIXABAN
     Dosage: 10 MILLIGRAM DAILY; 1-0-1-0

REACTIONS (4)
  - Peripheral swelling [Unknown]
  - Dyspnoea exertional [Unknown]
  - Cardiac failure [Unknown]
  - Cough [Unknown]
